FAERS Safety Report 5839219-1 (Version None)
Quarter: 2008Q3

REPORT INFORMATION
  Report Type: 
  Country: None (occurrence: None)
  Receive Date: 20080808
  Receipt Date: 20080801
  Transmission Date: 20090109
  Serious: Yes (Other)
  Sender: FDA-Public Use
  Company Number: US-PFIZER INC-2008052289

PATIENT
  Sex: Female
  Weight: 63.1 kg

DRUGS (7)
  1. LIPITOR [Suspect]
     Indication: BLOOD CHOLESTEROL INCREASED
     Route: 048
     Dates: start: 20070101, end: 20080101
  2. ELAVIL [Concomitant]
  3. PROTONIX [Concomitant]
  4. FLEXERIL [Concomitant]
  5. LIBRAX [Concomitant]
  6. ALL OTHER THERAPEUTIC PRODUCTS [Concomitant]
     Indication: IRRITABLE BOWEL SYNDROME
     Dosage: FREQ:AS NEEDED
  7. VITAMIN TAB [Concomitant]

REACTIONS (6)
  - AMNESIA [None]
  - BLADDER OPERATION [None]
  - COGNITIVE DISORDER [None]
  - DISTURBANCE IN ATTENTION [None]
  - MYALGIA [None]
  - SPINAL COLUMN STENOSIS [None]
